FAERS Safety Report 10435385 (Version 2)
Quarter: 2014Q4

REPORT INFORMATION
  Report Type: Spontaneous
  Country: US (occurrence: US)
  Receive Date: 20140908
  Receipt Date: 20141030
  Transmission Date: 20150528
  Serious: Yes (Other)
  Sender: FDA-Public Use
  Company Number: US-009507513-1409USA000647

PATIENT
  Age: 41 Year
  Sex: Male
  Weight: 85.3 kg

DRUGS (2)
  1. REBETOL [Suspect]
     Active Substance: RIBAVIRIN
     Indication: HEPATITIS C
     Dosage: TAKE THREE CAPSULES BY MOUTH IN TIIE MORNING AND TAKE TWO CAPSULES IN THE EVENING
     Route: 048
     Dates: start: 20130201
  2. VICTRELIS [Suspect]
     Active Substance: BOCEPREVIR
     Indication: HEPATITIS C
     Dosage: 800MG, TID, TAKE FOUR CAPSULES BY MOUTH EVERY 8 HOURS WITH FOOD
     Route: 048
     Dates: start: 20130301

REACTIONS (1)
  - Anaemia [Not Recovered/Not Resolved]

NARRATIVE: CASE EVENT DATE: 20130621
